FAERS Safety Report 8084161-1 (Version None)
Quarter: 2012Q1

REPORT INFORMATION
  Report Type: 
  Country: None (occurrence: None)
  Receive Date: 20120128
  Receipt Date: 20110208
  Transmission Date: 20120608
  Serious: No
  Sender: FDA-Public Use
  Company Number: US-ABBOTT-11P-163-0704778-00

PATIENT
  Sex: Female
  Weight: 80.358 kg

DRUGS (4)
  1. EFFEXOR [Concomitant]
     Indication: DEPRESSION
  2. HUMIRA [Suspect]
     Indication: CROHN'S DISEASE
     Dates: start: 20101201
  3. HYDROCHLOROTHIAZIDE [Concomitant]
     Indication: BLOOD PRESSURE
  4. PAXIL [Concomitant]
     Indication: DEPRESSION

REACTIONS (2)
  - ARTHRALGIA [None]
  - NASOPHARYNGITIS [None]
